FAERS Safety Report 24342803 (Version 1)
Quarter: 2024Q3

REPORT INFORMATION
  Report Type: Spontaneous
  Country: GB (occurrence: GB)
  Receive Date: 20240920
  Receipt Date: 20240920
  Transmission Date: 20241017
  Serious: Yes (Other)
  Sender: AUROBINDO
  Company Number: GB-009507513-2407GBR012552

PATIENT
  Age: 27 Year
  Sex: Female
  Weight: 99 kg

DRUGS (16)
  1. CARBOPLATIN [Suspect]
     Active Substance: CARBOPLATIN
     Indication: Triple negative breast cancer
     Dosage: 220 MILLIGRAM, CYCLICAL (220 MG, AUC 1.5, CYCLE 1 DAY 1)
     Route: 042
     Dates: start: 20240516, end: 20240516
  2. CARBOPLATIN [Suspect]
     Active Substance: CARBOPLATIN
     Dosage: 220 MILLIGRAM, CYCLICAL (220 MG, AUC 1.5, CYCLE 1 DAY 8)
     Route: 042
     Dates: start: 20240523, end: 20240523
  3. KEYTRUDA [Suspect]
     Active Substance: PEMBROLIZUMAB
     Indication: Triple negative breast cancer
     Dosage: 200 MILLIGRAM, CYCLICAL (200 MG, CYCLE 1 DAY 1)
     Route: 042
     Dates: start: 20240516
  4. PACLITAXEL [Suspect]
     Active Substance: PACLITAXEL
     Indication: Triple negative breast cancer
     Dosage: 162 MILLIGRAM, CYCLICAL  (162 MG, AUC 1.5 80 MG/M2, CYCLE 1 DAY 1)
     Route: 042
     Dates: start: 20240516, end: 20240516
  5. PACLITAXEL [Suspect]
     Active Substance: PACLITAXEL
     Dosage: 162 MILLIGRAM, CYCLICAL (162 MG, AUC 1.5 80 MG/M2, CYCLE 1 DAY 8)
     Route: 042
     Dates: start: 20240523, end: 20240523
  6. GOSERELIN [Suspect]
     Active Substance: GOSERELIN
     Indication: Triple negative breast cancer
     Dosage: 3.6 MILLIGRAM, CYCLICAL 3.6 MG, CYCLE 1 DAY 1)
     Route: 058
     Dates: start: 20240516, end: 20240516
  7. CHLORPHENIRAMINE MALEATE [Concomitant]
     Active Substance: CHLORPHENIRAMINE MALEATE
     Indication: Chemotherapy side effect prophylaxis
     Dosage: 10 MILLIGRAM (10 MG IV)
     Route: 042
     Dates: start: 20240516, end: 20240516
  8. CHLORPHENIRAMINE MALEATE [Concomitant]
     Active Substance: CHLORPHENIRAMINE MALEATE
     Dosage: 10 MILLIGRAM (10 MG IV)
     Route: 042
     Dates: start: 20240523, end: 20240523
  9. DEXAMETHASONE [Concomitant]
     Active Substance: DEXAMETHASONE
     Indication: Chemotherapy side effect prophylaxis
     Dosage: 6.6 MILLIGRAM (6.6 MG IV)
     Route: 042
     Dates: start: 20240516, end: 20240516
  10. DEXAMETHASONE [Concomitant]
     Active Substance: DEXAMETHASONE
     Dosage: 6.6 MILLIGRAM (6.6 MG IV)
     Route: 042
     Dates: start: 20240523, end: 20240523
  11. ONDANSETRON HYDROCHLORIDE [Concomitant]
     Active Substance: ONDANSETRON HYDROCHLORIDE
     Indication: Chemotherapy side effect prophylaxis
     Dosage: 8 MILLIGRAM (8 MG IV)
     Route: 048
     Dates: start: 20240516, end: 20240516
  12. ONDANSETRON HYDROCHLORIDE [Concomitant]
     Active Substance: ONDANSETRON HYDROCHLORIDE
     Dosage: 8 MILLIGRAM (8 MG IV)
     Route: 048
     Dates: start: 20240523, end: 20240523
  13. SODIUM CHLORIDE [Concomitant]
     Active Substance: SODIUM CHLORIDE
     Indication: Infusion
     Dosage: 500 MILLILITER (500 ML IVI DC)
     Route: 042
     Dates: start: 20240516, end: 20240516
  14. SODIUM CHLORIDE [Concomitant]
     Active Substance: SODIUM CHLORIDE
     Dosage: 500 MILLILITER (500 ML IVI DC)
     Route: 042
     Dates: start: 20240523, end: 20240523
  15. DEXTROSE [Concomitant]
     Active Substance: DEXTROSE\DEXTROSE MONOHYDRATE
     Indication: Catheter management
     Dosage: 100 MILLILITER (100 ML IVI DC)
     Route: 042
     Dates: start: 20240516, end: 20240516
  16. DEXTROSE [Concomitant]
     Active Substance: DEXTROSE\DEXTROSE MONOHYDRATE
     Dosage: 100 MILLILITER (100 ML IVI DC)
     Route: 042
     Dates: start: 20240523, end: 20240523

REACTIONS (2)
  - Product use issue [Unknown]
  - Adverse event [Unknown]

NARRATIVE: CASE EVENT DATE: 20240704
